FAERS Safety Report 13396030 (Version 2)
Quarter: 2017Q3

REPORT INFORMATION
  Report Type: Report from Study
  Country: US (occurrence: US)
  Receive Date: 20170403
  Receipt Date: 20170906
  Transmission Date: 20171127
  Serious: Yes (Hospitalization)
  Sender: FDA-Public Use
  Company Number: US-ROCHE-1892082

PATIENT
  Age: 50 Year
  Sex: Female
  Weight: 104 kg

DRUGS (38)
  1. SODIUM CHLORIDE. [Concomitant]
     Active Substance: SODIUM CHLORIDE
     Route: 042
     Dates: start: 20170206, end: 20170209
  2. MAGNESIUM SULFATE. [Concomitant]
     Active Substance: MAGNESIUM SULFATE
     Dosage: 4 G IN STERILE WATER 50 ML PREMIX IVPB
     Route: 065
     Dates: start: 20170206, end: 20170209
  3. LANTUS [Concomitant]
     Active Substance: INSULIN GLARGINE
     Dosage: 25 UNITS
     Route: 065
     Dates: start: 20170209, end: 20170211
  4. BIOTENE ORALBALANCE [Concomitant]
     Dosage: DRY MOUTH ORAL GEL ?1 APPLICATION
     Route: 048
     Dates: start: 20170209, end: 20170215
  5. TYLENOL [Concomitant]
     Active Substance: ACETAMINOPHEN
     Route: 065
     Dates: start: 20170207, end: 20170215
  6. INSULIN LISPRO [Concomitant]
     Active Substance: INSULIN LISPRO
     Dosage: 100 UNIT/ML?SLIDING, SCALE/CORRECTION: FACTOR: 151-200 = 2 UNIT; 201-250 = 4 UNITS; 251-300 = 6 UNIT
     Route: 065
     Dates: start: 20170215
  7. OMNIPAQUE [Concomitant]
     Active Substance: IOHEXOL
     Dosage: 375 MG/ML INJECTION 1-171 ML
     Route: 065
     Dates: start: 20170207, end: 20170207
  8. MYCOSTATIN [Concomitant]
     Active Substance: NYSTATIN
     Dosage: 1 SOLUTION
     Route: 048
     Dates: start: 20170209, end: 20170209
  9. SENOKOT [Concomitant]
     Active Substance: SENNOSIDES
     Route: 065
     Dates: start: 20170211, end: 20170215
  10. TOLTERODINE [Concomitant]
     Active Substance: TOLTERODINE
     Route: 065
     Dates: start: 20170202
  11. SODIUM CHLORIDE. [Concomitant]
     Active Substance: SODIUM CHLORIDE
     Route: 042
     Dates: start: 20170206, end: 20170207
  12. ZOSYN [Concomitant]
     Active Substance: PIPERACILLIN SODIUM\TAZOBACTAM SODIUM
     Dosage: IN DEXTROSE 100 ML
     Route: 065
     Dates: start: 20170206, end: 20170206
  13. XYLOCAINE [Concomitant]
     Active Substance: LIDOCAINE HYDROCHLORIDE
     Route: 065
     Dates: start: 20170206, end: 20170206
  14. SODIUM PHOSPHATE [Concomitant]
     Active Substance: SODIUM PHOSPHATE
     Dosage: IN SODIUM CHLORIDE 0.9 % WITH OVERFILL 115 ML
     Route: 065
     Dates: start: 20170206, end: 20170209
  15. POTASSIUM CHLORIDE. [Concomitant]
     Active Substance: POTASSIUM CHLORIDE
     Route: 065
     Dates: start: 20170207, end: 20170209
  16. GLUTOSE [Concomitant]
     Active Substance: DEXTROSE
     Dosage: 1 TUBE
     Route: 048
     Dates: start: 20170207, end: 20170215
  17. DEXTROSE. [Concomitant]
     Active Substance: DEXTROSE
     Dosage: 7.5-25 G
     Route: 065
     Dates: start: 20170206, end: 20170209
  18. DEXTROSE. [Concomitant]
     Active Substance: DEXTROSE
     Dosage: IVPB PREMEDICATION
     Route: 042
     Dates: start: 20170206, end: 20170206
  19. B1 [Concomitant]
     Route: 065
     Dates: start: 20170206, end: 20170207
  20. SYNTHROID [Concomitant]
     Active Substance: LEVOTHYROXINE SODIUM
     Route: 065
     Dates: start: 20170207, end: 20170215
  21. HUMALOG [Concomitant]
     Active Substance: INSULIN LISPRO
     Dosage: 4 INJECTIONS
     Route: 065
     Dates: start: 20170208, end: 20170215
  22. SENNA [Concomitant]
     Active Substance: SENNA LEAF\SENNOSIDES\SENNOSIDES A AND B
     Route: 065
     Dates: start: 20170215
  23. INSULIN REGULAR [Concomitant]
     Active Substance: INSULIN NOS
     Dosage: (HUMULIN R;NOVOLIN R) 100 UNITS IN 0.9 % SODIUM CHLORIDE 100 ML
     Route: 065
     Dates: start: 20170206, end: 20170209
  24. ONDANSETRON [Concomitant]
     Active Substance: ONDANSETRON
     Dosage: 4MG/2ML
     Route: 065
     Dates: start: 20170206, end: 20170215
  25. HEPARIN [Concomitant]
     Active Substance: HEPARIN SODIUM
     Dosage: 5000 UNITS
     Route: 065
  26. POLYETHYLENE GLYCOL [Concomitant]
     Active Substance: POLYETHYLENE GLYCOLS
     Dosage: MIRALAX PACKET
     Route: 065
     Dates: start: 20170211, end: 20170215
  27. DULCOLAX (BISACODYL) [Concomitant]
     Active Substance: BISACODYL
     Route: 065
     Dates: start: 20170213, end: 20170213
  28. POLYETHYLENE GLYCOL [Concomitant]
     Active Substance: POLYETHYLENE GLYCOLS
     Dosage: 1 PACKET
     Route: 065
     Dates: start: 20170215
  29. INSULIN GLARGINE [Concomitant]
     Active Substance: INSULIN GLARGINE
     Dosage: 100 UNIT/ML VIAL
     Route: 065
     Dates: start: 20170215
  30. SODIUM CHLORIDE. [Concomitant]
     Active Substance: SODIUM CHLORIDE
     Route: 065
     Dates: start: 20170207, end: 20170209
  31. DEXTROSE. [Concomitant]
     Active Substance: DEXTROSE
     Dosage: PREMIX IVPB
     Route: 065
     Dates: start: 20170206, end: 20170206
  32. POTASSIUM CHLORIDE. [Concomitant]
     Active Substance: POTASSIUM CHLORIDE
     Dosage: 20-40 MEQ
     Route: 048
     Dates: start: 20170207, end: 20170209
  33. DIFLUCAN (FLUCONAZOL) [Concomitant]
     Dosage: IN SODIUM CHLORIDE IN 0.9 %
     Route: 065
     Dates: start: 20170209, end: 20170209
  34. COLACE [Concomitant]
     Active Substance: DOCUSATE SODIUM
     Route: 065
     Dates: start: 20170211, end: 20170215
  35. OCRELIZUMAB. [Suspect]
     Active Substance: OCRELIZUMAB
     Indication: PRIMARY PROGRESSIVE MULTIPLE SCLEROSIS
     Dosage: 600 MG OCRELIZUMAB AS TWO 300 MG INFUSIONS SEPARATED BY 14 DAYS, EVERY 24 WEEKS.?DATE OF LAST DOSE P
     Route: 042
     Dates: start: 20161216
  36. SODIUM CHLORIDE. [Concomitant]
     Active Substance: SODIUM CHLORIDE
     Route: 065
     Dates: start: 20170206, end: 20170209
  37. VANCOCIN [Concomitant]
     Active Substance: VANCOMYCIN HYDROCHLORIDE
     Dosage: IN 5 % DEXTROSE 295 ML
     Route: 065
     Dates: start: 20170206, end: 20170206
  38. CALCIUM GLUCONATE. [Concomitant]
     Active Substance: CALCIUM GLUCONATE
     Dosage: WITH SODIUM CHLORIDE 0.9 % WITH OVERFILL 130 ML
     Route: 065
     Dates: start: 20170207, end: 20170209

REACTIONS (1)
  - Diabetic ketoacidosis [Not Recovered/Not Resolved]

NARRATIVE: CASE EVENT DATE: 20170206
